FAERS Safety Report 18159600 (Version 2)
Quarter: 2021Q1

REPORT INFORMATION
  Report Type: Spontaneous
  Country: US (occurrence: US)
  Receive Date: 20200817
  Receipt Date: 20210131
  Transmission Date: 20210419
  Serious: Yes (Hospitalization, Other)
  Sender: FDA-Public Use
  Company Number: US-PURDUE-USA-2020-0161463

PATIENT
  Age: 29 Year
  Sex: Male

DRUGS (8)
  1. OXYCONTIN [Suspect]
     Active Substance: OXYCODONE HYDROCHLORIDE
     Indication: BREAKTHROUGH PAIN
     Dosage: 80 MG, BID
     Route: 048
     Dates: start: 200505
  2. OXYIR [Suspect]
     Active Substance: OXYCODONE HYDROCHLORIDE
     Indication: PRODUCT USED FOR UNKNOWN INDICATION
     Dosage: UNK
     Route: 065
  3. MS CONTIN [Suspect]
     Active Substance: MORPHINE SULFATE
     Indication: PRODUCT USED FOR UNKNOWN INDICATION
     Dosage: UNK
     Route: 048
  4. HYDROCODONE BITARTRATE AND ACETAMINOPHEN [Suspect]
     Active Substance: ACETAMINOPHEN\HYDROCODONE BITARTRATE
     Indication: PRODUCT USED FOR UNKNOWN INDICATION
     Dosage: UNK
     Route: 048
  5. OXYFAST [Suspect]
     Active Substance: OXYCODONE
     Indication: PRODUCT USED FOR UNKNOWN INDICATION
     Dosage: UNK
     Route: 065
  6. MSIR [Suspect]
     Active Substance: MORPHINE SULFATE
     Indication: PRODUCT USED FOR UNKNOWN INDICATION
     Dosage: UNK
     Route: 065
  7. DILAUDID [Suspect]
     Active Substance: HYDROMORPHONE HYDROCHLORIDE
     Indication: PRODUCT USED FOR UNKNOWN INDICATION
     Dosage: UNK
     Route: 048
  8. OXYCODONE HCL TABLETS (RHODES 91?490) [Suspect]
     Active Substance: OXYCODONE HYDROCHLORIDE
     Indication: BREAKTHROUGH PAIN
     Dosage: UNK
     Route: 048

REACTIONS (32)
  - Coronary arterial stent insertion [Unknown]
  - Allogenic bone marrow transplantation therapy [Unknown]
  - Aspiration bone marrow [Unknown]
  - Incorrect route of product administration [Unknown]
  - Depression [Unknown]
  - Cerebrovascular accident [Unknown]
  - Cardiac disorder [Unknown]
  - Carotid artery stenosis [Unknown]
  - Cardiomyopathy [Unknown]
  - Limb injury [Unknown]
  - Dysphagia [Unknown]
  - Headache [Unknown]
  - Ventricular tachycardia [Unknown]
  - Overdose [Unknown]
  - Drug dependence [Unknown]
  - Cognitive disorder [Unknown]
  - Arm amputation [Unknown]
  - Implantable defibrillator insertion [Unknown]
  - Deep vein thrombosis [Unknown]
  - Balance disorder [Unknown]
  - Pain in extremity [Unknown]
  - Limb operation [Unknown]
  - Bone marrow transplant [Unknown]
  - Finger amputation [Unknown]
  - Lumbar puncture [Unknown]
  - Cystoscopy [Unknown]
  - Depression [Unknown]
  - Hand amputation [Unknown]
  - Myocardial infarction [Unknown]
  - Hemiparesis [Unknown]
  - Pain [Unknown]
  - Malnutrition [Unknown]

NARRATIVE: CASE EVENT DATE: 2005
